FAERS Safety Report 21442648 (Version 3)
Quarter: 2023Q1

REPORT INFORMATION
  Report Type: Other
  Country: FR (occurrence: FR)
  Receive Date: 20221012
  Receipt Date: 20230331
  Transmission Date: 20230418
  Serious: Yes (Death, Other)
  Sender: FDA-Public Use
  Company Number: FR-TOLMAR, INC.-22FR036751

PATIENT
  Age: 78 Year
  Sex: Male
  Weight: 67 kg

DRUGS (17)
  1. ELIGARD [Suspect]
     Active Substance: LEUPROLIDE ACETATE
     Indication: Prostate cancer
     Dosage: 22.5 MILLIGRAM, Q 3 MONTH
     Route: 058
     Dates: start: 20161020, end: 20210624
  2. ENZALUTAMIDE [Suspect]
     Active Substance: ENZALUTAMIDE
     Indication: Prostate cancer
     Dosage: UNK, QD
     Route: 048
     Dates: start: 20161020, end: 20210831
  3. SOTALOL [Concomitant]
     Active Substance: SOTALOL
     Indication: Prophylaxis
     Dosage: UNK
     Route: 048
     Dates: start: 200511
  4. RILMENIDINE PHOSPHATE [Concomitant]
     Active Substance: RILMENIDINE PHOSPHATE
     Indication: Hypertension
     Dosage: UNK
     Route: 048
     Dates: start: 20030422
  5. DOXYLAMINE SUCCINATE [Concomitant]
     Active Substance: DOXYLAMINE SUCCINATE
     Indication: Sleep apnoea syndrome
     Dosage: UNK
     Route: 048
     Dates: start: 2013
  6. LERCANIDIPINE HYDROCHLORIDE [Concomitant]
     Active Substance: LERCANIDIPINE HYDROCHLORIDE
     Indication: Hypertension
     Dosage: UNK
     Route: 048
     Dates: start: 20170310
  7. RAMIPRIL [Concomitant]
     Active Substance: RAMIPRIL
     Indication: Hypertension
     Dosage: UNK
     Route: 048
     Dates: start: 20180105
  8. ESIDREX [Concomitant]
     Active Substance: HYDROCHLOROTHIAZIDE
     Indication: Hypertension
     Dosage: UNK
     Route: 048
     Dates: start: 20181203
  9. KARDEGIC [Concomitant]
     Active Substance: ASPIRIN DL-LYSINE
     Indication: Cardiac disorder
     Dosage: UNK
     Route: 048
     Dates: start: 20181203
  10. PRADAXA [Concomitant]
     Active Substance: DABIGATRAN ETEXILATE MESYLATE
     Indication: Cardiac disorder
     Dosage: UNK
     Dates: start: 20200417
  11. ELTROMBOPAG OLAMINE [Concomitant]
     Active Substance: ELTROMBOPAG OLAMINE
     Indication: Thrombocytopenia
     Dosage: UNK
     Route: 058
     Dates: start: 20200513
  12. INNOHEP [Concomitant]
     Active Substance: TINZAPARIN SODIUM
     Indication: Anticoagulant therapy
     Dosage: UNK
     Dates: start: 20200419
  13. INNOHEP [Concomitant]
     Active Substance: TINZAPARIN SODIUM
     Indication: Atrial fibrillation
  14. TOPIALYSE [Concomitant]
     Indication: Eczema
     Dosage: UNK
     Dates: start: 20170412
  15. BORIC ACID [Concomitant]
     Active Substance: BORIC ACID
     Indication: Eye pain
     Dosage: UNK
     Dates: start: 20170826
  16. SPAGULAX [Concomitant]
     Active Substance: HERBALS\PLANTAGO OVATA SEED
     Indication: Constipation
     Dosage: UNK
     Dates: start: 20190115
  17. PRIMPERAN [Concomitant]
     Active Substance: METOCLOPRAMIDE HYDROCHLORIDE
     Indication: Nausea
     Dosage: UNK
     Dates: start: 20191029

REACTIONS (2)
  - Diffuse large B-cell lymphoma [Fatal]
  - Second primary malignancy [Fatal]

NARRATIVE: CASE EVENT DATE: 20210802
